FAERS Safety Report 8433720-2 (Version None)
Quarter: 2012Q2

REPORT INFORMATION
  Report Type: 
  Country: None (occurrence: None)
  Receive Date: 20120323
  Receipt Date: 20110725
  Transmission Date: 20120825
  Serious: Yes (Hospitalization)
  Sender: FDA-Public Use
  Company Number: 163-21880-11073143

PATIENT
  Age: 68 Year
  Sex: Male

DRUGS (2)
  1. REVLIMID [Suspect]
     Indication: MULTIPLE MYELOMA
     Dosage: 10 MG, DAILY FOR 21 DAYS, PO, 10 MG, DAILY FOR 21, PO
     Route: 048
     Dates: start: 20110330, end: 20110101
  2. REVLIMID [Suspect]
     Indication: MULTIPLE MYELOMA
     Dosage: 10 MG, DAILY FOR 21 DAYS, PO, 10 MG, DAILY FOR 21, PO
     Route: 048
     Dates: start: 20100607, end: 20101214

REACTIONS (2)
  - TREMOR [None]
  - DEHYDRATION [None]
